FAERS Safety Report 6101138-3 (Version None)
Quarter: 2009Q1

REPORT INFORMATION
  Report Type: 
  Country: None (occurrence: None)
  Receive Date: 20090304
  Receipt Date: 20090223
  Transmission Date: 20090719
  Serious: Yes (Life-Threatening)
  Sender: FDA-Public Use
  Company Number: FR-PURDUE-GBR_2009_0004901

PATIENT
  Age: 82 Year
  Sex: Male

DRUGS (10)
  1. OXYCONTIN [Suspect]
     Indication: ESCHAR
     Dosage: 10 MG, DAILY
     Route: 048
     Dates: start: 20081230, end: 20090129
  2. CYMBALTA [Concomitant]
     Indication: DRUG USE FOR UNKNOWN INDICATION
     Dosage: 60 MG, DAILY
     Route: 048
     Dates: start: 20081220, end: 20090129
  3. CIFLOX                             /00697201/ [Concomitant]
     Indication: CYSTITIS
     Dosage: 500 MG, UNK
     Route: 048
  4. OXYNORM CAPSULES [Suspect]
     Indication: PAIN
     Dosage: 6 DF, DAILY
     Route: 048
     Dates: start: 20081230, end: 20090129
  5. AMLOR [Concomitant]
     Indication: HYPERTENSION
     Dosage: 10 MG, DAILY
     Route: 048
     Dates: end: 20090129
  6. LANTUS [Concomitant]
     Indication: INSULIN-REQUIRING TYPE 2 DIABETES MELLITUS
     Dosage: 22 UNIT, DAILY
     Route: 058
     Dates: start: 20081220, end: 20090129
  7. PLAVIX [Concomitant]
     Indication: ISCHAEMIC STROKE
     Dosage: 75 MG, DAILY
     Route: 048
     Dates: start: 20070101, end: 20090129
  8. SEROPLEX [Concomitant]
     Indication: DEPRESSION
     Dosage: 10 MG, DAILY
     Route: 048
     Dates: start: 20080101, end: 20090129
  9. COVERSYL                           /00790701/ [Concomitant]
     Indication: HYPERTENSION
     Dosage: 4 MG, DAILY
     Route: 048
  10. PYOSTACINE [Concomitant]
     Indication: CYSTITIS
     Dosage: 6 X 500 MG, DAILY
     Route: 048
     Dates: start: 20081220, end: 20090129

REACTIONS (5)
  - CHEYNE-STOKES RESPIRATION [None]
  - COMA [None]
  - MIOSIS [None]
  - OVERDOSE [None]
  - RESPIRATORY DISTRESS [None]
